FAERS Safety Report 25219923 (Version 1)
Quarter: 2025Q2

REPORT INFORMATION
  Report Type: Spontaneous
  Country: US (occurrence: US)
  Receive Date: 20250421
  Receipt Date: 20250421
  Transmission Date: 20250716
  Serious: Yes (Hospitalization)
  Sender: AMGEN
  Company Number: US-AMGEN-USASP2025075865

PATIENT
  Age: 18 Year
  Sex: Male

DRUGS (4)
  1. PREDNISONE [Suspect]
     Active Substance: PREDNISONE
     Indication: Transplant rejection
     Route: 065
  2. TACROLIMUS [Concomitant]
     Active Substance: TACROLIMUS
     Indication: Transplant rejection
  3. MYCOPHENOLATE MOFETIL [Concomitant]
     Active Substance: MYCOPHENOLATE MOFETIL
     Indication: Transplant rejection
  4. CYSTEAMINE BITARTRATE [Concomitant]
     Active Substance: CYSTEAMINE BITARTRATE
     Indication: Transplant rejection

REACTIONS (8)
  - Haematochezia [Unknown]
  - Arterial haemorrhage [Unknown]
  - Intestinal ulcer [Unknown]
  - Intestinal polyp [Unknown]
  - Cytomegalovirus infection [Unknown]
  - Colitis [Unknown]
  - Haematocrit decreased [Unknown]
  - Haemoglobin decreased [Unknown]
